FAERS Safety Report 9583099 (Version 1)
Quarter: 2013Q4

REPORT INFORMATION
  Report Type: Spontaneous
  Country: US (occurrence: US)
  Receive Date: 20131002
  Receipt Date: 20131002
  Transmission Date: 20140711
  Serious: No
  Sender: FDA-Public Use
  Company Number: US-AMGEN-USASP2013044832

PATIENT
  Age: 61 Year
  Sex: Male
  Weight: 77.1 kg

DRUGS (7)
  1. ENBREL [Suspect]
     Indication: PRODUCT USED FOR UNKNOWN INDICATION
     Dosage: 50 MG, QWK
     Route: 058
  2. PREDNISONE [Concomitant]
     Dosage: 10 MG, UNK
  3. METHOTREXATE [Concomitant]
     Dosage: 2.5 MG, UNK
  4. AVAPRO [Concomitant]
     Dosage: 75 MG, UNK
  5. ALLOPURINOL [Concomitant]
     Dosage: 100 MG, UNK
  6. FOLIC ACID [Concomitant]
     Dosage: UNK
  7. ZIAC [Concomitant]
     Dosage: UNK, 10/6.25

REACTIONS (1)
  - Drug ineffective [Unknown]
